FAERS Safety Report 7229262-2 (Version None)
Quarter: 2011Q1

REPORT INFORMATION
  Report Type: 
  Country: None (occurrence: None)
  Receive Date: 20110117
  Receipt Date: 20110106
  Transmission Date: 20110831
  Serious: Yes (Hospitalization, Other)
  Sender: FDA-Public Use
  Company Number: US-ELI_LILLY_AND_COMPANY-US201002001982

PATIENT
  Sex: Female

DRUGS (17)
  1. FORTEO [Suspect]
     Dosage: 20 UG, DAILY (1/D)
  2. LOVASTATIN [Concomitant]
  3. TRAMADOL [Concomitant]
  4. FORTEO [Suspect]
     Dosage: 20 UG, DAILY (1/D)
  5. FORTEO [Suspect]
     Dosage: 20 UG, DAILY (1/D)
  6. MELOXICAM [Concomitant]
  7. SYNTHROID [Concomitant]
  8. AMBIEN [Concomitant]
  9. CYMBALTA [Concomitant]
  10. CALCIUM [Concomitant]
  11. FORTEO [Suspect]
     Dosage: 20 UG, DAILY (1/D)
  12. CARVEDILOL [Concomitant]
  13. FORTEO [Suspect]
     Indication: OSTEOPOROSIS
     Dosage: 20 UG, DAILY (1/D)
     Route: 058
     Dates: start: 20100101
  14. ASPIRIN [Concomitant]
  15. ALTACE [Concomitant]
  16. PRILOSEC [Concomitant]
  17. VITAMIN D [Concomitant]

REACTIONS (10)
  - DRUG DISPENSING ERROR [None]
  - FALL [None]
  - MUSCULOSKELETAL PAIN [None]
  - HIP FRACTURE [None]
  - LOWER LIMB FRACTURE [None]
  - ARTHRITIS INFECTIVE [None]
  - ARTHRITIS [None]
  - PAIN IN EXTREMITY [None]
  - DRUG DOSE OMISSION [None]
  - NERVE COMPRESSION [None]
